FAERS Safety Report 21599441 (Version 2)
Quarter: 2023Q1

REPORT INFORMATION
  Report Type: Report from Study
  Country: US (occurrence: US)
  Receive Date: 20221115
  Receipt Date: 20230315
  Transmission Date: 20230417
  Serious: No
  Sender: FDA-Public Use
  Company Number: US-ABBVIE-22K-163-4402837-00

PATIENT
  Sex: Female

DRUGS (5)
  1. RINVOQ [Suspect]
     Active Substance: UPADACITINIB
     Indication: Rheumatoid arthritis
     Route: 048
     Dates: start: 20191016
  2. RINVOQ [Suspect]
     Active Substance: UPADACITINIB
     Indication: Rheumatoid arthritis
     Route: 048
  3. RINVOQ [Suspect]
     Active Substance: UPADACITINIB
     Indication: Rheumatoid arthritis
     Route: 048
  4. RINVOQ [Suspect]
     Active Substance: UPADACITINIB
     Indication: Rheumatoid arthritis
     Route: 048
  5. PREDNISONE [Concomitant]
     Active Substance: PREDNISONE
     Indication: Product used for unknown indication

REACTIONS (16)
  - Fibromyalgia [Unknown]
  - Joint stiffness [Not Recovered/Not Resolved]
  - Musculoskeletal disorder [Unknown]
  - Arthropathy [Unknown]
  - Joint lock [Unknown]
  - Bone loss [Unknown]
  - Blood pressure abnormal [Unknown]
  - Drug tolerance increased [Unknown]
  - Joint dislocation [Unknown]
  - Fall [Unknown]
  - Unevaluable event [Unknown]
  - Peripheral swelling [Unknown]
  - Weight increased [Unknown]
  - Osteoporosis [Unknown]
  - Skin abrasion [Unknown]
  - Weight fluctuation [Unknown]
